FAERS Safety Report 6543171-3 (Version None)
Quarter: 2010Q1

REPORT INFORMATION
  Report Type: 
  Country: None (occurrence: None)
  Receive Date: 20100120
  Receipt Date: 20100114
  Transmission Date: 20100710
  Serious: Yes (Death, Life-Threatening, Hospitalization, Disabling, Other)
  Sender: FDA-Public Use
  Company Number: DK-BAYER-200936925GPV

PATIENT
  Age: 47 Year
  Sex: Male
  Weight: 53 kg

DRUGS (8)
  1. GADOLINIUMHOLDIG KONTRAST -UNK MAH [Suspect]
     Indication: SCAN WITH CONTRAST
     Route: 042
     Dates: start: 20010601, end: 20010601
  2. GADOLINIUMHOLDIG KONTRAST -UNK MAH [Suspect]
     Route: 042
     Dates: start: 20010601, end: 20010601
  3. CENTYL MED KALIUMKLORID [Concomitant]
     Route: 048
  4. MIXTARD HUMAN 70/30 [Concomitant]
  5. ACTRAPID [Concomitant]
  6. CALCIUM CARBONAT [Concomitant]
  7. FURIX [Concomitant]
  8. VOLTAREN [Concomitant]

REACTIONS (3)
  - CARDIAC FAILURE [None]
  - NEPHROGENIC SYSTEMIC FIBROSIS [None]
  - SYSTEMIC SCLEROSIS [None]
